FAERS Safety Report 19843910 (Version 1)
Quarter: 2021Q3

REPORT INFORMATION
  Report Type: Spontaneous
  Country: ES (occurrence: ES)
  Receive Date: 20210917
  Receipt Date: 20210917
  Transmission Date: 20211014
  Serious: Yes (Other)
  Sender: FDA-Public Use
  Company Number: ES-SA-2021SA303600

PATIENT
  Sex: Female
  Weight: 82 kg

DRUGS (1)
  1. LANTUS SOLOSTAR [Suspect]
     Active Substance: INSULIN GLARGINE
     Indication: TYPE 2 DIABETES MELLITUS
     Dosage: UNK
     Route: 058

REACTIONS (5)
  - Hypermetropia [Unknown]
  - Transaminases increased [Unknown]
  - Myopia [Unknown]
  - Diabetes mellitus inadequate control [Unknown]
  - Colon cancer [Unknown]
